FAERS Safety Report 10042956 (Version 2)
Quarter: 2014Q1

REPORT INFORMATION
  Report Type: Report from Study
  Country: PL (occurrence: PL)
  Receive Date: 20140328
  Receipt Date: 20140328
  Transmission Date: 20141002
  Serious: Yes (Life-Threatening, Hospitalization)
  Sender: FDA-Public Use
  Company Number: PL-ROCHE-680468

PATIENT
  Age: 69 Year
  Sex: Male

DRUGS (12)
  1. RITUXIMAB [Suspect]
     Indication: MALIGNANT LYMPHOID NEOPLASM
     Route: 042
  2. RITUXIMAB [Suspect]
     Route: 042
     Dates: start: 20090324, end: 20090328
  3. RITUXIMAB [Suspect]
     Route: 042
  4. CYCLOPHOSPHAMIDE [Suspect]
     Indication: LYMPHOMA
     Route: 042
     Dates: start: 20090227
  5. VINCRISTINE [Suspect]
     Indication: LYMPHOMA
     Route: 042
     Dates: start: 20090227
  6. PREDNISONE [Suspect]
     Indication: LYMPHOMA
     Route: 048
     Dates: start: 20090227
  7. FORADIL [Concomitant]
     Route: 065
  8. ATROVENT [Concomitant]
     Route: 065
     Dates: start: 20090408, end: 20090427
  9. AMLODIPINE [Concomitant]
  10. SPIRIVA [Concomitant]
     Route: 065
  11. BUDESONID [Concomitant]
     Route: 065
     Dates: start: 20090408, end: 20090427
  12. THEOSPIREX [Concomitant]
     Route: 065

REACTIONS (2)
  - Lung neoplasm malignant [Unknown]
  - Chronic obstructive pulmonary disease [Unknown]
